FAERS Safety Report 21376850 (Version 1)
Quarter: 2022Q3

REPORT INFORMATION
  Report Type: Spontaneous
  Country: US (occurrence: US)
  Receive Date: 20220926
  Receipt Date: 20220926
  Transmission Date: 20221026
  Serious: Yes (Other)
  Sender: FDA-Public Use
  Company Number: US-MYOVANT SCIENCES GMBH-2022MYSCI0900492

PATIENT
  Sex: Male

DRUGS (5)
  1. ORGOVYX [Suspect]
     Active Substance: RELUGOLIX
     Indication: Prostate cancer
     Dosage: 240 MILLIGRAM, ONE TIME DOSE
     Route: 048
     Dates: start: 2021, end: 2021
  2. ORGOVYX [Suspect]
     Active Substance: RELUGOLIX
     Dosage: 120 MILLIGRAM, QD
     Route: 048
     Dates: start: 2021
  3. PREDNISONE [Concomitant]
     Active Substance: PREDNISONE
     Indication: Steroid therapy
     Dosage: UNK
     Route: 065
  4. ONDANSETRON [Concomitant]
     Active Substance: ONDANSETRON
     Indication: Nausea
     Dosage: UNK, PRN
     Route: 065
  5. SENNA ALEXANDRINA WHOLE [Concomitant]
     Active Substance: SENNA ALEXANDRINA WHOLE
     Indication: Constipation
     Dosage: 1 TAB, QD
     Route: 048

REACTIONS (4)
  - Prostate cancer [Unknown]
  - Therapy interrupted [Unknown]
  - Therapy interrupted [Recovered/Resolved]
  - Incorrect dose administered [Recovered/Resolved]

NARRATIVE: CASE EVENT DATE: 20210101
